FAERS Safety Report 5574289-X (Version None)
Quarter: 2007Q4

REPORT INFORMATION
  Report Type: 
  Country: None (occurrence: None)
  Receive Date: 20071226
  Receipt Date: 20071226
  Transmission Date: 20080405
  Serious: Yes (Other)
  Sender: FDA-Public Use
  Company Number: None

PATIENT
  Sex: Female

DRUGS (1)
  1. OXYCODONE HCL EXTENDED-RELEASE [Suspect]
     Indication: INTERVERTEBRAL DISC DISORDER
     Dosage: 40MG PO TID
     Route: 048

REACTIONS (2)
  - ABDOMINAL DISCOMFORT [None]
  - DRUG INTOLERANCE [None]
